FAERS Safety Report 12881538 (Version 4)
Quarter: 2019Q3

REPORT INFORMATION
  Report Type: Spontaneous
  Country: US (occurrence: US)
  Receive Date: 20161025
  Receipt Date: 20190823
  Transmission Date: 20191004
  Serious: No
  Sender: FDA-Public Use
  Company Number: US-JNJFOC-20161010040

PATIENT
  Sex: Male

DRUGS (2)
  1. RISPERDAL [Suspect]
     Active Substance: RISPERIDONE
     Indication: AFFECTIVE DISORDER
     Dosage: IN VARYING DOSES OF 0.25 OR 0.5 MG IN VARYING FREQUENCIES
     Route: 048
     Dates: start: 20051109
  2. RISPERDAL [Suspect]
     Active Substance: RISPERIDONE
     Indication: BEHAVIOUR DISORDER
     Dosage: IN VARYING DOSES OF 0.5MG, 1MG, 1.5MG, 2MG AND 3 MG IN VARYING FREQUENCIES
     Route: 048
     Dates: start: 20041011, end: 20050303

REACTIONS (3)
  - Drug ineffective [Unknown]
  - Gynaecomastia [Unknown]
  - Emotional distress [Unknown]
